FAERS Safety Report 6287593-7 (Version None)
Quarter: 2009Q3

REPORT INFORMATION
  Report Type: 
  Country: None (occurrence: None)
  Receive Date: 20090727
  Receipt Date: 20090713
  Transmission Date: 20100115
  Serious: Yes (Hospitalization)
  Sender: FDA-Public Use
  Company Number: 8044914

PATIENT
  Age: 68 Year
  Sex: Female
  Weight: 81 kg

DRUGS (15)
  1. CERTOLIZUMAB PEGOL [Suspect]
     Indication: RHEUMATOID ARTHRITIS
     Dosage: 400 MG /M SC
     Route: 058
     Dates: start: 20030910, end: 20090421
  2. CERTOLIZUMAB PEGOL [Suspect]
     Indication: RHEUMATOID ARTHRITIS
     Dosage: 400 MG /M SC
     Route: 058
     Dates: start: 20090513, end: 20090612
  3. CERTOLIZUMAB PEGOL [Suspect]
     Indication: RHEUMATOID ARTHRITIS
     Dosage: 400 MG /M SC
     Route: 058
     Dates: start: 20090713
  4. PREDNISOLONE [Concomitant]
  5. METHOTREXATE [Concomitant]
  6. FOLSAN [Concomitant]
  7. TIOTROPIUM BROMIDE [Concomitant]
  8. L-THYROXIN [Concomitant]
  9. METOPROLOL TARTRATE [Concomitant]
  10. DELIX [Concomitant]
  11. METFORMIN [Concomitant]
  12. LEVEMIR [Concomitant]
  13. CITALOPRAM [Concomitant]
  14. HYDROCHLOROTHIAZIDE [Concomitant]
  15. ENOXAPARIN SODIUM [Concomitant]

REACTIONS (10)
  - ASTHMA [None]
  - DIABETES MELLITUS [None]
  - EXOSTOSIS [None]
  - HYPERTENSION [None]
  - HYPERTHYROIDISM [None]
  - IMPAIRED HEALING [None]
  - POST PROCEDURAL COMPLICATION [None]
  - TOXIC NODULAR GOITRE [None]
  - WOUND DEHISCENCE [None]
  - WOUND INFECTION STAPHYLOCOCCAL [None]
